FAERS Safety Report 6546140-2 (Version None)
Quarter: 2010Q1

REPORT INFORMATION
  Report Type: 
  Country: None (occurrence: None)
  Receive Date: 20100112
  Receipt Date: 20100108
  Transmission Date: 20100710
  Serious: Yes (Hospitalization)
  Sender: FDA-Public Use
  Company Number: 2010021856

PATIENT
  Sex: Female

DRUGS (3)
  1. VIVAGLOBIN [Suspect]
     Indication: HYPOGAMMAGLOBULINAEMIA
     Dosage: 49 ML, 49 ML WEEKLY IN 3 SITES OVER 2-4 HOURS, SUBCUTANEOUS
     Route: 058
     Dates: start: 20090522
  2. VIVAGLOBIN [Suspect]
  3. LYRICA [Suspect]

REACTIONS (1)
  - RENAL FAILURE ACUTE [None]
